FAERS Safety Report 8343779 (Version 8)
Quarter: 2013Q2

REPORT INFORMATION
  Report Type: Spontaneous
  Country: US (occurrence: US)
  Receive Date: 20120110
  Receipt Date: 20130507
  Transmission Date: 20140414
  Serious: Yes (Death, Other)
  Sender: FDA-Public Use
  Company Number: ADR-2012-00031

PATIENT
  Age: 51 Year
  Sex: Female

DRUGS (2)
  1. BACLOFEN [Suspect]
     Indication: MUSCLE SPASTICITY
     Dosage: SEE B5
  2. BACLOFEN [Suspect]
     Indication: BRAIN INJURY
     Dosage: SEE B5

REACTIONS (21)
  - Cardiac arrest [None]
  - Hypoxic-ischaemic encephalopathy [None]
  - Tremor [None]
  - Pulseless electrical activity [None]
  - Tonic convulsion [None]
  - Medical device complication [None]
  - Withdrawal syndrome [None]
  - Pump reservoir issue [None]
  - Dyspnoea [None]
  - Device malfunction [None]
  - Insomnia [None]
  - Postictal state [None]
  - Confusional state [None]
  - Arteriosclerosis [None]
  - Benign neoplasm of thyroid gland [None]
  - Asthma [None]
  - Implant site haematoma [None]
  - Lethargy [None]
  - Hypertonia [None]
  - Muscle spasticity [None]
  - Cardiac failure [None]
